FAERS Safety Report 4350210-7 (Version None)
Quarter: 2004Q2

REPORT INFORMATION
  Report Type: 
  Country: None (occurrence: None)
  Receive Date: 20040428
  Receipt Date: 20040409
  Transmission Date: 20050107
  Serious: Yes (Death, Life-Threatening, Hospitalization)
  Sender: FDA-Public Use
  Company Number: 2004-FF-000022FF

PATIENT
  Age: 38 Year
  Sex: Male

DRUGS (2)
  1. VIRAMUNE [Suspect]
     Indication: HIV INFECTION
     Dosage: 200 MG (200 MG, 1 IN 1 D)
     Route: 048
     Dates: start: 20031210
  2. KALETRA [Concomitant]

REACTIONS (15)
  - ACIDOSIS [None]
  - APHAGIA [None]
  - APHTHOUS STOMATITIS [None]
  - ARTHRALGIA [None]
  - ASPIRATION [None]
  - CONJUNCTIVITIS [None]
  - HAEMODYNAMIC INSTABILITY [None]
  - KERATITIS [None]
  - LUNG DISORDER [None]
  - MULTI-ORGAN FAILURE [None]
  - PARAESTHESIA ORAL [None]
  - PSEUDOMONAS INFECTION [None]
  - SEPTIC SHOCK [None]
  - SHOCK [None]
  - TOXIC EPIDERMAL NECROLYSIS [None]
